FAERS Safety Report 16317268 (Version 1)
Quarter: 2019Q2

REPORT INFORMATION
  Report Type: Spontaneous
  Country: US (occurrence: US)
  Receive Date: 20190515
  Receipt Date: 20190515
  Transmission Date: 20190711
  Serious: Yes (Life-Threatening, Hospitalization)
  Sender: FDA-Public Use
  Company Number: US-TEVA-2019-US-1049648

PATIENT
  Age: 3 Year
  Sex: Female

DRUGS (2)
  1. VECURONIUM [Suspect]
     Active Substance: VECURONIUM BROMIDE
     Route: 042
  2. SALINE [Suspect]
     Active Substance: SODIUM CHLORIDE
     Dosage: IV LINE.
     Route: 042

REACTIONS (4)
  - Paralysis [Unknown]
  - Wrong patient received product [Unknown]
  - Respiratory arrest [Unknown]
  - Physical product label issue [Unknown]
